FAERS Safety Report 6296327-1 (Version None)
Quarter: 2009Q3

REPORT INFORMATION
  Report Type: 
  Country: None (occurrence: None)
  Receive Date: 20090804
  Receipt Date: 20090724
  Transmission Date: 20100115
  Serious: Yes (Other)
  Sender: FDA-Public Use
  Company Number: PHHY2009DE31027

PATIENT
  Age: 76 Year
  Sex: Male
  Weight: 79 kg

DRUGS (3)
  1. ZOMETA [Suspect]
     Indication: PROSTATE CANCER
     Dosage: 4 MG EVERY 4 WEEKS
     Route: 042
  2. ZOMETA [Suspect]
     Indication: METASTASES TO BONE
  3. DOCETAXEL [Concomitant]
     Dosage: 75 MG/M2/DAY
     Route: 042
     Dates: start: 20060721, end: 20061108

REACTIONS (1)
  - OSTEONECROSIS [None]
